FAERS Safety Report 8981277 (Version 1)
Quarter: 2012Q4

REPORT INFORMATION
  Report Type: 
  Country: DK (occurrence: DK)
  Receive Date: 20121221
  Receipt Date: 20121221
  Transmission Date: 20130627
  Serious: Yes (Other)
  Sender: FDA-Public Use
  Company Number: DK-PFIZER INC-2012320858

PATIENT
  Sex: Male

DRUGS (1)
  1. DOSTINEX [Suspect]
     Indication: HYPERPROLACTINEMIA
     Dosage: UNK
     Dates: start: 199710

REACTIONS (1)
  - Raynaud^s phenomenon [Unknown]
